FAERS Safety Report 15906459 (Version 1)
Quarter: 2019Q1

REPORT INFORMATION
  Report Type: Spontaneous
  Country: GB (occurrence: GB)
  Receive Date: 20190203
  Receipt Date: 20190203
  Transmission Date: 20190417
  Serious: Yes (Disabling)
  Sender: FDA-Public Use
  Company Number: None

PATIENT
  Age: 24 Year
  Sex: Male
  Weight: 60 kg

DRUGS (8)
  1. L-GLUTAMINE [Concomitant]
  2. IODINE. [Concomitant]
     Active Substance: IODINE
  3. GLYCINATE [Concomitant]
  4. VITAMIN D [Concomitant]
     Active Substance: CHOLECALCIFEROL
  5. FINASTERIDE. [Suspect]
     Active Substance: FINASTERIDE
     Indication: ALOPECIA
     Dosage: ?          QUANTITY:1 CAPSULE(S);?
     Route: 048
     Dates: start: 20150909, end: 20160516
  6. TYRO-PLUS [Concomitant]
  7. NASCENT [Concomitant]
  8. TARACYN HCL [Concomitant]

REACTIONS (10)
  - Fatigue [None]
  - Headache [None]
  - Depression [None]
  - Libido decreased [None]
  - Suicidal ideation [None]
  - Muscular weakness [None]
  - Palpitations [None]
  - Penile size reduced [None]
  - Feeling abnormal [None]
  - Muscle twitching [None]

NARRATIVE: CASE EVENT DATE: 20160415
